FAERS Safety Report 6911843-4 (Version None)
Quarter: 2010Q3

REPORT INFORMATION
  Report Type: 
  Country: None (occurrence: None)
  Receive Date: 20100806
  Receipt Date: 20071105
  Transmission Date: 20110219
  Serious: No
  Sender: FDA-Public Use
  Company Number: US-PFIZER INC-2007069230

PATIENT
  Sex: Male
  Weight: 29.5 kg

DRUGS (3)
  1. DETROL LA [Suspect]
     Indication: NEUROGENIC BLADDER
  2. MIRALAX [Concomitant]
  3. BACTRIM [Concomitant]

REACTIONS (3)
  - BLADDER SPASM [None]
  - MIDDLE INSOMNIA [None]
  - URINARY INCONTINENCE [None]
